FAERS Safety Report 16540039 (Version 1)
Quarter: 2019Q3

REPORT INFORMATION
  Report Type: Spontaneous
  Country: US (occurrence: US)
  Receive Date: 20190524
  Receipt Date: 20190524
  Transmission Date: 20191004
  Serious: Yes (Hospitalization)
  Sender: FDA-Public Use
  Company Number: None

PATIENT
  Age: 55 Year
  Sex: Male
  Weight: 111.13 kg

DRUGS (2)
  1. AMLODIPINE [Suspect]
     Active Substance: AMLODIPINE BESYLATE
     Indication: HYPERTENSION
     Route: 048
     Dates: start: 20181004, end: 20181009
  2. FUROSEMIDE. [Suspect]
     Active Substance: FUROSEMIDE
     Indication: HYPERTENSION
     Route: 048
     Dates: start: 20181004, end: 20181009

REACTIONS (2)
  - Dizziness [None]
  - Hypotension [None]

NARRATIVE: CASE EVENT DATE: 20181009
